FAERS Safety Report 9239605 (Version 1)
Quarter: 2013Q2

REPORT INFORMATION
  Report Type: Spontaneous
  Country: GR (occurrence: GR)
  Receive Date: 20130418
  Receipt Date: 20130418
  Transmission Date: 20140414
  Serious: Yes (Other)
  Sender: FDA-Public Use
  Company Number: GR-PFIZER INC-2013115765

PATIENT
  Age: 78 Year
  Sex: Female

DRUGS (5)
  1. CISPLATIN [Suspect]
     Indication: ADRENAL GLAND CANCER
     Dosage: 40 MG/M2, UNK
  2. ADRIAMYCIN [Concomitant]
     Indication: ADRENAL GLAND CANCER
     Dosage: 40 MG/M2, UNK
  3. ETOPOSIDE [Concomitant]
     Indication: ADRENAL GLAND CANCER
     Dosage: 100 MG/M2, UNK
  4. MITOTANE [Concomitant]
     Indication: ADRENAL GLAND CANCER
     Dosage: 2 G/DAY
     Route: 048
  5. HYDROCORTISONE [Concomitant]
     Indication: HORMONE REPLACEMENT THERAPY

REACTIONS (3)
  - Retinal detachment [Recovered/Resolved]
  - Deafness neurosensory [Unknown]
  - Off label use [Unknown]
